FAERS Safety Report 8787253 (Version 2)
Quarter: 2014Q1

REPORT INFORMATION
  Report Type: Spontaneous
  Country: BR (occurrence: BR)
  Receive Date: 20120914
  Receipt Date: 20140305
  Transmission Date: 20141002
  Serious: Yes (Death, Hospitalization, Other)
  Sender: FDA-Public Use
  Company Number: BR-AMGEN-BRASP2012057259

PATIENT
  Age: 59 Year
  Sex: Male
  Weight: 55 kg

DRUGS (10)
  1. ENBREL [Suspect]
     Indication: RHEUMATOID ARTHRITIS
     Dosage: 25 MG, WEEKLY
     Route: 058
     Dates: start: 201110, end: 201201
  2. ENBREL [Suspect]
     Dosage: UNK
     Route: 065
     Dates: start: 201203
  3. ARAVA [Concomitant]
     Dosage: UNK UNK, UNK
  4. CALCIUM [Concomitant]
     Dosage: UNK UNK, UNK
  5. REUQUINOL [Concomitant]
     Dosage: UNK UNK, UNK
  6. SIMVASTATIN [Concomitant]
     Dosage: UNK UNK, UNK
  7. LOSARTAN [Concomitant]
     Dosage: UNK
  8. OMEPRAZOL                          /00661201/ [Concomitant]
     Dosage: UNK UNK, UNK
  9. CEBRALAT [Concomitant]
     Dosage: UNK UNK, UNK
  10. SULFASALAZINE [Concomitant]
     Dosage: UNK

REACTIONS (6)
  - Death [Fatal]
  - Angiopathy [Unknown]
  - Renal disorder [Unknown]
  - Tooth disorder [Unknown]
  - Sepsis [Unknown]
  - Pneumonia [Unknown]
